FAERS Safety Report 19425419 (Version 2)
Quarter: 2021Q2

REPORT INFORMATION
  Report Type: Report from Study
  Country: CA (occurrence: CA)
  Receive Date: 20210617
  Receipt Date: 20210629
  Transmission Date: 20210717
  Serious: Yes (Other)
  Sender: FDA-Public Use
  Company Number: CA-JNJFOC-20210620346

PATIENT
  Age: 25 Year
  Sex: Female

DRUGS (1)
  1. REMICADE [Suspect]
     Active Substance: INFLIXIMAB
     Indication: COLITIS ULCERATIVE
     Dosage: ON 09?JUN?2021, THE PATIENT RECEIVED 1ST INFUSION OF 300 MG
     Route: 042
     Dates: start: 20210609

REACTIONS (4)
  - Oropharyngeal discomfort [Recovered/Resolved]
  - Infusion related reaction [Recovered/Resolved]
  - Chest pain [Not Recovered/Not Resolved]
  - Chest discomfort [Recovered/Resolved]

NARRATIVE: CASE EVENT DATE: 20210609
